FAERS Safety Report 23790057 (Version 2)
Quarter: 2024Q2

REPORT INFORMATION
  Report Type: Spontaneous
  Country: SI (occurrence: None)
  Receive Date: 20240426
  Receipt Date: 20240523
  Transmission Date: 20240716
  Serious: Yes (Death, Other)
  Sender: FDA-Public Use
  Company Number: 2024A099594

PATIENT
  Sex: Male

DRUGS (8)
  1. DURVALUMAB [Suspect]
     Active Substance: DURVALUMAB
     Route: 042
  2. GEMCITABINE [Suspect]
     Active Substance: GEMCITABINE
     Route: 042
  3. CISPLATIN [Suspect]
     Active Substance: CISPLATIN
     Route: 042
  4. METOCLOPRAMIDE [Concomitant]
     Active Substance: METOCLOPRAMIDE
  5. LOPERAMIDE [Concomitant]
     Active Substance: LOPERAMIDE
  6. UREA [Concomitant]
     Active Substance: UREA
  7. CAPECITABINE [Concomitant]
     Active Substance: CAPECITABINE
  8. TRAMADOL [Concomitant]
     Active Substance: TRAMADOL\TRAMADOL HYDROCHLORIDE

REACTIONS (12)
  - Death [Fatal]
  - Immune-mediated enterocolitis [Unknown]
  - Thrombocytopenia [Unknown]
  - Recurrent cancer [Unknown]
  - Metastases to liver [Unknown]
  - Spinal osteoarthritis [Unknown]
  - Metastases to spine [Unknown]
  - Nerve compression [Unknown]
  - Diarrhoea [Unknown]
  - Nausea [Unknown]
  - Malignant neoplasm progression [Unknown]
  - Cholangitis [Unknown]
